FAERS Safety Report 14690684 (Version 1)
Quarter: 2018Q1

REPORT INFORMATION
  Report Type: Spontaneous
  Country: US (occurrence: US)
  Receive Date: 20180328
  Receipt Date: 20180328
  Transmission Date: 20180509
  Serious: No
  Sender: FDA-Public Use
  Company Number: US-ELI_LILLY_AND_COMPANY-US201803011440

PATIENT
  Age: 58 Year
  Sex: Male

DRUGS (6)
  1. METFORMIN [Concomitant]
     Active Substance: METFORMIN HYDROCHLORIDE
  2. BASAGLAR [Suspect]
     Active Substance: INSULIN GLARGINE
     Dosage: 10 U, UNKNOWN
     Route: 058
  3. BASAGLAR [Suspect]
     Active Substance: INSULIN GLARGINE
     Dosage: 4 U, UNKNOWN
     Route: 058
     Dates: start: 20180322, end: 20180322
  4. GLIMEPIRIDE. [Concomitant]
     Active Substance: GLIMEPIRIDE
  5. BASAGLAR [Suspect]
     Active Substance: INSULIN GLARGINE
     Indication: TYPE 2 DIABETES MELLITUS
     Dosage: 10 U, UNKNOWN
     Route: 058
  6. BASAGLAR [Suspect]
     Active Substance: INSULIN GLARGINE
     Dosage: 8 U, UNKNOWN
     Route: 058
     Dates: start: 20180321, end: 20180321

REACTIONS (1)
  - Underdose [Unknown]

NARRATIVE: CASE EVENT DATE: 20180321
